FAERS Safety Report 8343251-6 (Version None)
Quarter: 2012Q2

REPORT INFORMATION
  Report Type: 
  Country: None (occurrence: None)
  Receive Date: 20120503
  Receipt Date: 20120503
  Transmission Date: 20120825
  Serious: Yes (Life-Threatening)
  Sender: FDA-Public Use
  Company Number: None

PATIENT
  Sex: Female
  Weight: 58.9676 kg

DRUGS (1)
  1. REMICADE [Suspect]
     Indication: CROHN'S DISEASE
     Dosage: 600MG IV EVERY 4 WEEKS
     Route: 042

REACTIONS (3)
  - ERYTHEMA [None]
  - THROAT TIGHTNESS [None]
  - ANAPHYLACTIC SHOCK [None]
